FAERS Safety Report 11905495 (Version 4)
Quarter: 2017Q4

REPORT INFORMATION
  Report Type: Spontaneous
  Country: US (occurrence: US)
  Receive Date: 20160109
  Receipt Date: 20171123
  Transmission Date: 20180320
  Serious: Yes (Other)
  Sender: FDA-Public Use
  Company Number: US-JNJFOC-20151222926

PATIENT
  Age: 38 Year
  Sex: Male

DRUGS (9)
  1. RISPERDAL [Suspect]
     Active Substance: RISPERIDONE
     Indication: MAJOR DEPRESSION
     Dosage: 1.5MG-3MG
     Route: 048
     Dates: start: 2001, end: 2001
  2. RISPERDAL [Suspect]
     Active Substance: RISPERIDONE
     Indication: ANXIETY DISORDER
     Dosage: 1.5-3MG
     Route: 048
     Dates: start: 2000
  3. RISPERDAL [Suspect]
     Active Substance: RISPERIDONE
     Indication: ANXIETY DISORDER
     Dosage: 1.5MG-3MG
     Route: 048
     Dates: start: 2001, end: 2001
  4. RISPERDAL [Suspect]
     Active Substance: RISPERIDONE
     Indication: MAJOR DEPRESSION
     Dosage: 1.5-3MG
     Route: 048
     Dates: start: 200005, end: 200107
  5. RISPERIDONE. [Suspect]
     Active Substance: RISPERIDONE
     Indication: PRODUCT USED FOR UNKNOWN INDICATION
     Route: 048
  6. RISPERDAL [Suspect]
     Active Substance: RISPERIDONE
     Indication: ANXIETY DISORDER
     Route: 048
     Dates: end: 2002
  7. RISPERDAL [Suspect]
     Active Substance: RISPERIDONE
     Indication: ANXIETY DISORDER
     Dosage: 1.5-3MG
     Route: 048
     Dates: start: 200005, end: 200107
  8. RISPERDAL [Suspect]
     Active Substance: RISPERIDONE
     Indication: MAJOR DEPRESSION
     Dosage: 1.5-3MG
     Route: 048
     Dates: start: 2000
  9. RISPERDAL [Suspect]
     Active Substance: RISPERIDONE
     Indication: MAJOR DEPRESSION
     Route: 048
     Dates: end: 2002

REACTIONS (6)
  - Product use in unapproved indication [Unknown]
  - Malaise [Unknown]
  - Restlessness [Unknown]
  - Gynaecomastia [Unknown]
  - Swollen tongue [Unknown]
  - Off label use [Unknown]

NARRATIVE: CASE EVENT DATE: 200005
